FAERS Safety Report 8611730 (Version 4)
Quarter: 2015Q2

REPORT INFORMATION
  Report Type: Spontaneous
  Country: US (occurrence: US)
  Receive Date: 20120613
  Receipt Date: 20150618
  Transmission Date: 20150821
  Serious: Yes (Death, Hospitalization)
  Sender: FDA-Public Use
  Company Number: US-SANOFI-AVENTIS-2012SA041798

PATIENT
  Age: 63 Year
  Sex: Male

DRUGS (11)
  1. TYLENOL [Concomitant]
     Active Substance: ACETAMINOPHEN
  2. METOPROLOL [Concomitant]
     Active Substance: METOPROLOL
  3. FAMOTIDINE. [Concomitant]
     Active Substance: FAMOTIDINE
  4. LIPITOR [Concomitant]
     Active Substance: ATORVASTATIN CALCIUM
  5. COUMADIN [Concomitant]
     Active Substance: WARFARIN SODIUM
  6. CEFEPIME [Concomitant]
     Active Substance: CEFEPIME\CEFEPIME HYDROCHLORIDE
  7. NEUPOGEN [Concomitant]
     Active Substance: FILGRASTIM
  8. PERCOCET [Concomitant]
     Active Substance: ACETAMINOPHEN\OXYCODONE HYDROCHLORIDE
  9. PLAVIX [Suspect]
     Active Substance: CLOPIDOGREL BISULFATE
     Indication: STENT PLACEMENT
     Route: 048
     Dates: start: 201107, end: 20111110
  10. VITAMIN D3 [Concomitant]
     Active Substance: CHOLECALCIFEROL
     Dosage: DOSE:2000 UNIT(S)
  11. VORICONAZOLE. [Concomitant]
     Active Substance: VORICONAZOLE

REACTIONS (2)
  - Thrombotic thrombocytopenic purpura [Fatal]
  - Multiple injuries [Fatal]

NARRATIVE: CASE EVENT DATE: 20111110
